FAERS Safety Report 4294999-4 (Version None)
Quarter: 2004Q1

REPORT INFORMATION
  Report Type: 
  Country: None (occurrence: None)
  Receive Date: 20040212
  Receipt Date: 20040212
  Transmission Date: 20041129
  Serious: Yes (Death, Life-Threatening)
  Sender: FDA-Public Use
  Company Number: None

PATIENT
  Age: 60 Year
  Sex: Male
  Weight: 72.5755 kg

DRUGS (1)
  1. INTERLEUKIN 2 600 MILLION UNITS/VIAL CHERON [Suspect]
     Indication: RENAL CANCER METASTATIC
     Dosage: 720, 000 UNITS /KG Q 8 H SQ
     Route: 058

REACTIONS (9)
  - BLOOD BICARBONATE DECREASED [None]
  - BLOOD PH DECREASED [None]
  - CONFUSIONAL STATE [None]
  - MENTAL STATUS CHANGES [None]
  - PCO2 DECREASED [None]
  - PO2 INCREASED [None]
  - PULMONARY OEDEMA [None]
  - PYREXIA [None]
  - RENAL FAILURE ACUTE [None]
